FAERS Safety Report 13229415 (Version 1)
Quarter: 2017Q1

REPORT INFORMATION
  Report Type: Report from Study
  Country: None (occurrence: AR)
  Receive Date: 20170214
  Receipt Date: 20170214
  Transmission Date: 20170428
  Serious: Yes (Hospitalization, Other)
  Sender: FDA-Public Use
  Company Number: AR-ABBVIE-17K-007-1827360-00

PATIENT
  Sex: Female

DRUGS (3)
  1. HUMIRA [Suspect]
     Active Substance: ADALIMUMAB
     Route: 058
     Dates: start: 2016, end: 20161212
  2. HUMIRA [Suspect]
     Active Substance: ADALIMUMAB
     Indication: COLITIS
     Dosage: LOADING DOSE
     Route: 058
     Dates: start: 20161128, end: 20161128
  3. HUMIRA [Suspect]
     Active Substance: ADALIMUMAB
     Indication: COLITIS ULCERATIVE
     Route: 058
     Dates: end: 2015

REACTIONS (4)
  - Drug ineffective [Not Recovered/Not Resolved]
  - Colitis ulcerative [Unknown]
  - Megacolon [Recovering/Resolving]
  - Pulmonary tuberculosis [Unknown]

NARRATIVE: CASE EVENT DATE: 2015
